FAERS Safety Report 20035092 (Version 1)
Quarter: 2021Q4

REPORT INFORMATION
  Report Type: Spontaneous
  Country: US (occurrence: US)
  Receive Date: 20211104
  Receipt Date: 20211104
  Transmission Date: 20220303
  Serious: No
  Sender: FDA-Public Use
  Company Number: US-Vifor (International) Inc.-VIT-2021-08475

PATIENT
  Age: 72 Year
  Sex: Male

DRUGS (12)
  1. VELTASSA [Suspect]
     Active Substance: PATIROMER
     Indication: Hyperkalaemia
  2. CALCIUM GLUCONATE [Suspect]
     Active Substance: CALCIUM GLUCONATE
     Indication: Hyperkalaemia
  3. INSULIN NOS [Suspect]
     Active Substance: INSULIN NOS
     Indication: Hyperkalaemia
  4. REMDESIVIR [Concomitant]
     Active Substance: REMDESIVIR
  5. AZITHROMYCIN [Concomitant]
     Active Substance: AZITHROMYCIN
  6. CEFTRIAXONE [Concomitant]
     Active Substance: CEFTRIAXONE
  7. LOVENOX [Concomitant]
     Active Substance: ENOXAPARIN SODIUM
  8. DECADRON [Concomitant]
     Active Substance: DEXAMETHASONE
  9. ZINC [Concomitant]
     Active Substance: ZINC
  10. VITAMIN C [Concomitant]
     Active Substance: ASCORBIC ACID
  11. HEPARIN [Concomitant]
     Active Substance: HEPARIN SODIUM
  12. DEXTROSE [Suspect]
     Active Substance: DEXTROSE

REACTIONS (1)
  - Drug ineffective [Unknown]
